FAERS Safety Report 5147412-9 (Version None)
Quarter: 2006Q4

REPORT INFORMATION
  Report Type: 
  Country: None (occurrence: None)
  Receive Date: 20061106
  Receipt Date: 20061020
  Transmission Date: 20070319
  Serious: Yes (Disabling)
  Sender: FDA-Public Use
  Company Number: TRP_0862_2006

PATIENT
  Age: 58 Year
  Sex: Male

DRUGS (19)
  1. RIBASPHERE [Suspect]
     Indication: HEPATITIS C
     Dosage: 600 MG BID PO
     Route: 048
     Dates: start: 20060302, end: 20060511
  2. INFERGEN [Suspect]
     Indication: HEPATITIS C
     Dosage: 9 MCG QDAY SC
     Route: 058
     Dates: start: 20060302, end: 20060511
  3. RIBASPHERE [Suspect]
     Indication: HEPATITIS C
     Dosage: 600 MG QDAY PO
     Route: 048
     Dates: start: 20060512, end: 20060513
  4. INFERGEN [Suspect]
     Indication: HEPATITIS C
     Dosage: 9 MCG QDAY SC
     Route: 058
     Dates: start: 20060514, end: 20060625
  5. RIBASPHERE [Suspect]
     Indication: HEPATITIS C
     Dosage: 1200 MG QDAY PO
     Route: 048
     Dates: start: 20060514, end: 20060625
  6. INFERGEN [Suspect]
     Indication: HEPATITIS C
     Dosage: 6 MCG QDAY SC
     Route: 058
     Dates: start: 20060626, end: 20060709
  7. RIBASPHERE [Suspect]
     Indication: HEPATITIS C
     Dosage: 600 MG QDAY PO
     Route: 048
     Dates: start: 20060626, end: 20060705
  8. RIBASPHERE [Suspect]
     Indication: HEPATITIS C
     Dosage: 800 MG QDAY PO
     Route: 048
     Dates: start: 20060706, end: 20060709
  9. RIBASPHERE [Suspect]
     Indication: HEPATITIS C
     Dosage: 600 MG QDAY PO
     Route: 048
     Dates: start: 20060711, end: 20060807
  10. INFERGEN [Suspect]
     Dosage: 6 MCG QDAY SC
     Route: 058
     Dates: start: 20060711, end: 20060807
  11. VITAMIN B COMPLEX CAP [Concomitant]
  12. PROPAFENONE HCL [Concomitant]
  13. WARFARIN SODIUM [Concomitant]
  14. TRANXENE [Concomitant]
  15. WELLBUTRIN [Concomitant]
  16. DIGOXIN [Concomitant]
  17. ZIAC [Concomitant]
  18. IBUPROFEN [Concomitant]
  19. HYDROCORTISONE [Concomitant]

REACTIONS (13)
  - ACTIVITIES OF DAILY LIVING IMPAIRED [None]
  - AGNOSIA [None]
  - ANOREXIA [None]
  - ASTHENIA [None]
  - ATRIAL FIBRILLATION [None]
  - BALANCE DISORDER [None]
  - BLOOD THYROID STIMULATING HORMONE INCREASED [None]
  - DISEASE RECURRENCE [None]
  - DISORIENTATION [None]
  - FATIGUE [None]
  - LOSS OF PROPRIOCEPTION [None]
  - NERVOUS SYSTEM DISORDER [None]
  - PLATELET COUNT DECREASED [None]
